FAERS Safety Report 11858141 (Version 1)
Quarter: 2015Q4

REPORT INFORMATION
  Report Type: Spontaneous
  Country: US (occurrence: US)
  Receive Date: 20151222
  Receipt Date: 20151222
  Transmission Date: 20160305
  Serious: Yes (Other)
  Sender: FDA-Public Use
  Company Number: US-TEVA-581872USA

PATIENT
  Sex: Female

DRUGS (1)
  1. TRAZODONE [Suspect]
     Active Substance: TRAZODONE HYDROCHLORIDE
     Dosage: 12.5 MILLIGRAM DAILY;
     Route: 065

REACTIONS (7)
  - Dysuria [Unknown]
  - Urinary retention [Not Recovered/Not Resolved]
  - Pollakiuria [Not Recovered/Not Resolved]
  - Tinnitus [Not Recovered/Not Resolved]
  - Poor quality sleep [Not Recovered/Not Resolved]
  - Urinary tract infection [Unknown]
  - Vulvovaginal burning sensation [Not Recovered/Not Resolved]
